FAERS Safety Report 16687866 (Version 1)
Quarter: 2019Q4

REPORT INFORMATION
  Report Type: Spontaneous
  Country: US (occurrence: US)
  Receive Date: 20190808
  Receipt Date: 20190808
  Transmission Date: 20200122
  Serious: No
  Sender: FDA-Public Use
  Company Number: None

PATIENT
  Age: 26 Year
  Sex: Male
  Weight: 85.95 kg

DRUGS (1)
  1. REFRESH OPTIVE ADVANCED [Suspect]
     Active Substance: CARBOXYMETHYLCELLULOSE SODIUM\GLYCERIN\POLYSORBATE 80
     Indication: DRY EYE
     Dosage: ?          QUANTITY:1 DROP(S);?
     Route: 047
     Dates: start: 20190805, end: 20190808

REACTIONS (1)
  - Instillation site irritation [None]

NARRATIVE: CASE EVENT DATE: 20190805
